FAERS Safety Report 5621537-3 (Version None)
Quarter: 2008Q1

REPORT INFORMATION
  Report Type: 
  Country: None (occurrence: None)
  Receive Date: 20080129
  Receipt Date: 20080115
  Transmission Date: 20080703
  Serious: Yes (Other)
  Sender: FDA-Public Use
  Company Number: B0504991A

PATIENT
  Sex: 0

DRUGS (3)
  1. VALACYCLOVIR [Suspect]
     Indication: RENAL TRANSPLANT
     Dosage: 2 GRAM(S) / FOUR TIMES PER DAY /
  2. CO-TRIMOXAZOLE [Concomitant]
  3. AMPHOTERICIN B [Concomitant]

REACTIONS (3)
  - CYTOMEGALOVIRUS INFECTION [None]
  - DRUG INEFFECTIVE [None]
  - NEPHRITIS [None]
